FAERS Safety Report 6768614-1 (Version None)
Quarter: 2010Q2

REPORT INFORMATION
  Report Type: 
  Country: None (occurrence: None)
  Receive Date: 20100614
  Receipt Date: 20100607
  Transmission Date: 20101027
  Serious: Yes (Hospitalization)
  Sender: FDA-Public Use
  Company Number: ES-ROCHE-708016

PATIENT
  Age: 60 Year
  Sex: Female

DRUGS (2)
  1. BEVACIZUMAB [Suspect]
     Indication: BREAST CANCER
     Route: 042
     Dates: start: 20100204, end: 20100226
  2. TAXOTERE [Interacting]
     Indication: BREAST CANCER
     Route: 042
     Dates: start: 20100204, end: 20100301

REACTIONS (3)
  - BLEPHARITIS [None]
  - NEUTROPENIA [None]
  - STOMATITIS [None]
